FAERS Safety Report 4412251-0 (Version None)
Quarter: 2004Q3

REPORT INFORMATION
  Report Type: 
  Country: None (occurrence: None)
  Receive Date: 20040727
  Receipt Date: 20040712
  Transmission Date: 20050211
  Serious: Yes (Hospitalization, Other)
  Sender: FDA-Public Use
  Company Number: US-JNJFOC-20040402009

PATIENT
  Sex: Female
  Weight: 64.8644 kg

DRUGS (8)
  1. DURAGESIC [Suspect]
     Indication: CANCER PAIN
     Dosage: 75 UG/HR, 1 IN 72 HOUR, TRANSDERMAL
     Route: 062
     Dates: start: 20031201, end: 20040101
  2. VINCRISTINE [Suspect]
     Indication: CHEMOTHERAPY
     Dates: start: 20040225
  3. LEVOTHYROXINE SODIUM [Concomitant]
  4. DIFLUCAN [Concomitant]
  5. RISPERDAL [Concomitant]
  6. LEVAQUIN [Concomitant]
  7. MULTIVITAMIN (MULTIVITAMINS) [Concomitant]
  8. ACYCLOVIR [Concomitant]

REACTIONS (34)
  - AGITATION [None]
  - ASTHENIA [None]
  - ATELECTASIS [None]
  - BLINDNESS CORTICAL [None]
  - BLINDNESS TRANSIENT [None]
  - CATHETER RELATED INFECTION [None]
  - CONTUSION [None]
  - DISORIENTATION [None]
  - DRUG EFFECT DECREASED [None]
  - DRUG INTERACTION [None]
  - ENCEPHALOPATHY [None]
  - ERYTHEMA [None]
  - GAIT DISTURBANCE [None]
  - HEPATIC LESION [None]
  - HYPERCALCAEMIA [None]
  - HYPOACUSIS [None]
  - HYPOXIA [None]
  - INFLAMMATION [None]
  - INTERNATIONAL NORMALISED RATIO INCREASED [None]
  - IRON DEFICIENCY ANAEMIA [None]
  - JUGULAR VEIN THROMBOSIS [None]
  - MUCOSAL INFLAMMATION [None]
  - NERVOUSNESS [None]
  - NUCLEAR MAGNETIC RESONANCE IMAGING ABNORMAL [None]
  - OEDEMA PERIPHERAL [None]
  - OVERDOSE [None]
  - OXYGEN SATURATION DECREASED [None]
  - PHLEBOTHROMBOSIS [None]
  - RESPIRATORY FAILURE [None]
  - SKIN NODULE [None]
  - SPLENIC LESION [None]
  - STAPHYLOCOCCAL SEPSIS [None]
  - TENDERNESS [None]
  - URINARY TRACT INFECTION [None]
